FAERS Safety Report 10921804 (Version 1)
Quarter: 2015Q1

REPORT INFORMATION
  Report Type: Spontaneous
  Country: FR (occurrence: FR)
  Receive Date: 20150317
  Receipt Date: 20150317
  Transmission Date: 20150721
  Serious: Yes (Hospitalization, Other)
  Sender: FDA-Public Use
  Company Number: FR-JNJFOC-20150307956

PATIENT
  Age: 36 Year
  Sex: Female

DRUGS (10)
  1. SIMPONI [Suspect]
     Active Substance: GOLIMUMAB
     Indication: PSORIATIC ARTHROPATHY
     Route: 058
     Dates: start: 201401, end: 20150106
  2. NOVONORM [Concomitant]
     Active Substance: REPAGLINIDE
     Route: 065
  3. ACTIQ [Concomitant]
     Active Substance: FENTANYL CITRATE
     Route: 065
  4. 1-ALFACALCIDOL [Concomitant]
     Route: 065
  5. KARDEGIC [Concomitant]
     Active Substance: ASPIRIN LYSINE
     Route: 065
  6. PARACETAMOL [Concomitant]
     Active Substance: ACETAMINOPHEN
     Route: 065
  7. CELEBREX [Concomitant]
     Active Substance: CELECOXIB
     Route: 065
  8. EUPANTOL [Concomitant]
     Active Substance: PANTOPRAZOLE SODIUM
     Route: 065
  9. GALVUS [Concomitant]
     Active Substance: VILDAGLIPTIN
     Route: 065
  10. DUROGESIC [Concomitant]
     Active Substance: FENTANYL
     Route: 065

REACTIONS (4)
  - Dental caries [Unknown]
  - Endocarditis [Unknown]
  - Parathyroidectomy [Unknown]
  - Localised infection [Unknown]

NARRATIVE: CASE EVENT DATE: 20140324
